FAERS Safety Report 6422230-X (Version None)
Quarter: 2009Q4

REPORT INFORMATION
  Report Type: 
  Country: None (occurrence: None)
  Receive Date: 20091030
  Receipt Date: 20091027
  Transmission Date: 20100525
  Serious: Yes (Death)
  Sender: FDA-Public Use
  Company Number: PHHY2009BE46449

PATIENT
  Sex: Female
  Weight: 55 kg

DRUGS (5)
  1. ACLASTA [Suspect]
     Indication: OSTEOPOROSIS
     Dosage: 5 MG, UNK
     Route: 042
     Dates: start: 20090216
  2. CALCIUM [Concomitant]
     Dosage: 1000 MG/DAY
  3. VITAMIN D [Concomitant]
     Dosage: 800 UNITS/DAY
  4. ASAFLOW [Concomitant]
  5. SELOKEN [Concomitant]

REACTIONS (2)
  - MALAISE [None]
  - MYOCARDIAL INFARCTION [None]
